FAERS Safety Report 5070489-6 (Version None)
Quarter: 2006Q3

REPORT INFORMATION
  Report Type: 
  Country: None (occurrence: None)
  Receive Date: 20060804
  Receipt Date: 20060724
  Transmission Date: 20061208
  Serious: Yes (Disabling, Other)
  Sender: FDA-Public Use
  Company Number: GB-JNJFOC-20060704803

PATIENT
  Sex: Female
  Weight: 57 kg

DRUGS (8)
  1. REMICADE [Suspect]
     Dosage: REINTRODUCED
     Route: 042
  2. REMICADE [Suspect]
     Indication: DRUG USE FOR UNKNOWN INDICATION
     Dosage: 1 INFUSION
     Route: 042
  3. FOLIC ACID [Concomitant]
     Route: 048
  4. HYDROCORTISONE TAB [Concomitant]
     Route: 042
  5. METHOTREXATE [Concomitant]
     Route: 048
  6. PIRITON [Concomitant]
     Route: 042
  7. PREDNISOLONE [Concomitant]
     Route: 048
  8. RISEDRONATE [Concomitant]
     Route: 048

REACTIONS (5)
  - ARTHRALGIA [None]
  - NAUSEA [None]
  - NIGHT SWEATS [None]
  - SWOLLEN TONGUE [None]
  - TRISMUS [None]
